FAERS Safety Report 25894153 (Version 2)
Quarter: 2025Q4

REPORT INFORMATION
  Report Type: Spontaneous
  Country: CN (occurrence: CN)
  Receive Date: 20251008
  Receipt Date: 20251024
  Transmission Date: 20260118
  Serious: Yes (Other)
  Sender: ALKEM
  Company Number: None

PATIENT
  Age: 41 Year
  Sex: Female

DRUGS (11)
  1. LINEZOLID [Suspect]
     Active Substance: LINEZOLID
     Indication: Evidence based treatment
     Dosage: 600 MILLIGRAM, BID
     Route: 042
     Dates: start: 202306, end: 20230701
  2. LINEZOLID [Suspect]
     Active Substance: LINEZOLID
     Indication: Antibiotic therapy
     Dosage: UNK
     Route: 048
  3. LINEZOLID [Suspect]
     Active Substance: LINEZOLID
     Indication: Atypical mycobacterial infection
     Dosage: 300 MILLIGRAM, BID
     Route: 048
  4. LINEZOLID [Suspect]
     Active Substance: LINEZOLID
     Indication: Postoperative wound infection
  5. MINOCYCLINE [Suspect]
     Active Substance: MINOCYCLINE HYDROCHLORIDE
     Indication: Antibiotic therapy
     Dosage: 100 MILLIGRAM, BID
     Route: 065
  6. LEVOFLOXACIN [Suspect]
     Active Substance: LEVOFLOXACIN
     Indication: Arthritis infective
     Dosage: 500 MILLIGRAM, QD
     Route: 042
     Dates: start: 2023
  7. CEFOPERAZONE\SULBACTAM [Suspect]
     Active Substance: CEFOPERAZONE\SULBACTAM
     Indication: Arthritis infective
     Dosage: 3 GRAM, TID
     Route: 065
     Dates: start: 2023
  8. AMIKACIN [Concomitant]
     Active Substance: AMIKACIN
     Indication: Atypical mycobacterial infection
     Dosage: 600 MILLIGRAM, QD
     Route: 065
     Dates: start: 20230629, end: 20230701
  9. AMIKACIN [Concomitant]
     Active Substance: AMIKACIN
     Indication: Postoperative wound infection
     Dosage: 400 MILLIGRAM, QD (REDUCED DOSE)
     Route: 065
  10. IMIPENEM [Concomitant]
     Active Substance: IMIPENEM
     Indication: Atypical mycobacterial infection
     Dosage: 1 GRAM, BID
     Route: 065
     Dates: start: 20230701
  11. IMIPENEM [Concomitant]
     Active Substance: IMIPENEM
     Indication: Postoperative wound infection

REACTIONS (8)
  - Antibiotic level above therapeutic [Recovered/Resolved]
  - Haematotoxicity [Recovered/Resolved]
  - Anaemia [Recovered/Resolved]
  - Thrombocytopenia [Recovered/Resolved]
  - Myelosuppression [Unknown]
  - Ototoxicity [Unknown]
  - Vestibular disorder [Unknown]
  - Drug ineffective [Unknown]

NARRATIVE: CASE EVENT DATE: 20230701
